FAERS Safety Report 15720114 (Version 3)
Quarter: 2019Q1

REPORT INFORMATION
  Report Type: Report from Study
  Country: GB (occurrence: GB)
  Receive Date: 20181213
  Receipt Date: 20190128
  Transmission Date: 20190417
  Serious: Yes (Death, Hospitalization, Other)
  Sender: FDA-Public Use
  Company Number: GB-JNJFOC-20181206538

PATIENT
  Sex: Male

DRUGS (1)
  1. STELARA [Suspect]
     Active Substance: USTEKINUMAB
     Indication: PSORIASIS
     Route: 058
     Dates: start: 20150427

REACTIONS (5)
  - Pruritus [Unknown]
  - Death [Fatal]
  - Product dose omission [Unknown]
  - Parkinson^s disease [Unknown]
  - Decreased appetite [Unknown]
